FAERS Safety Report 10326624 (Version 2)
Quarter: 2015Q1

REPORT INFORMATION
  Report Type: Other
  Country: US (occurrence: US)
  Receive Date: 20140720
  Receipt Date: 20150211
  Transmission Date: 20150720
  Serious: Yes (Hospitalization, Other)
  Sender: FDA-Public Use
  Company Number: US-GSKPPD-2014GSK023129

PATIENT
  Age: 72 Year
  Sex: Male

DRUGS (6)
  1. COUMADINE [Concomitant]
     Active Substance: WARFARIN SODIUM
  2. AVALIDE [Concomitant]
     Active Substance: HYDROCHLOROTHIAZIDE\IRBESARTAN
     Dosage: 150 PER 12.5 MG
  3. TOPROL XL [Concomitant]
     Active Substance: METOPROLOL SUCCINATE
  4. AVANDIA [Suspect]
     Active Substance: ROSIGLITAZONE MALEATE
     Indication: DIABETES MELLITUS
     Dosage: AVANDIA WAS NOT LISTED AMONG THE PATIENTS RECORDS REVIEWED.
     Route: 048
  5. LISINOPRIL. [Concomitant]
     Active Substance: LISINOPRIL
  6. LASIX [Concomitant]
     Active Substance: FUROSEMIDE

REACTIONS (2)
  - Atrial fibrillation [Recovered/Resolved]
  - Cardiac failure congestive [Unknown]

NARRATIVE: CASE EVENT DATE: 20061102
